FAERS Safety Report 8593789-1 (Version None)
Quarter: 2012Q3

REPORT INFORMATION
  Report Type: 
  Country: None (occurrence: None)
  Receive Date: 20120814
  Receipt Date: 20120719
  Transmission Date: 20120928
  Serious: Yes (Other)
  Sender: FDA-Public Use
  Company Number: CN-BAXTER-2012BAX012454

PATIENT
  Sex: Female

DRUGS (2)
  1. SODIUM CHLORIDE INJ [Suspect]
     Route: 041
     Dates: start: 20110805, end: 20110817
  2. MANNITOL [Suspect]
     Indication: DEHYDRATION
     Route: 041
     Dates: start: 20110805, end: 20110817

REACTIONS (2)
  - CHILLS [None]
  - VOMITING [None]
